FAERS Safety Report 5618981-7 (Version None)
Quarter: 2008Q1

REPORT INFORMATION
  Report Type: 
  Country: None (occurrence: None)
  Receive Date: 20080204
  Receipt Date: 20080123
  Transmission Date: 20080703
  Serious: Yes (Other)
  Sender: FDA-Public Use
  Company Number: CHNY2008DE00654

PATIENT
  Age: 4 Year
  Sex: Female

DRUGS (1)
  1. XYLOMETAZOLINE HYDROCHLORIDE (NCH)(CYLOMETAZOLINE HYDROCHLORIDE) NASAL [Suspect]

REACTIONS (2)
  - ANXIETY [None]
  - HALLUCINATION [None]
